FAERS Safety Report 8328135-1 (Version None)
Quarter: 2012Q2

REPORT INFORMATION
  Report Type: 
  Country: None (occurrence: None)
  Receive Date: 20120502
  Receipt Date: 20120427
  Transmission Date: 20120825
  Serious: Yes (Life-Threatening, Hospitalization, Other)
  Sender: FDA-Public Use
  Company Number: PHHY2012BR036480

PATIENT
  Age: 76 Year
  Sex: Female

DRUGS (2)
  1. FORMOTEROL FUMARATE [Suspect]
     Indication: ASTHMA
     Dosage: 2 DF,(2 INHALATIONS OF EACH TREATMENT DAILY)
  2. COMBIVENT [Suspect]
     Indication: ASTHMA

REACTIONS (8)
  - DIVERTICULITIS [None]
  - OSTEOPOROSIS [None]
  - WHEEZING [None]
  - GASTROOESOPHAGEAL REFLUX DISEASE [None]
  - DYSPNOEA [None]
  - APPARENT DEATH [None]
  - BRONCHITIS [None]
  - HAEMORRHOIDS [None]
